FAERS Safety Report 5010928-X (Version None)
Quarter: 2006Q2

REPORT INFORMATION
  Report Type: 
  Country: None (occurrence: None)
  Receive Date: 20060523
  Receipt Date: 20060523
  Transmission Date: 20061013
  Serious: No
  Sender: FDA-Public Use
  Company Number: None

PATIENT
  Age: 77 Year

DRUGS (1)
  1. LOVENOX [Suspect]
     Indication: THROMBOSIS PROPHYLAXIS
     Dosage: 30MG Q12 SQ
     Route: 058
     Dates: start: 20050902, end: 20050908

REACTIONS (2)
  - GASTROINTESTINAL HAEMORRHAGE [None]
  - HYPOTENSION [None]
